FAERS Safety Report 11100529 (Version 1)
Quarter: 2015Q2

REPORT INFORMATION
  Report Type: Report from Study
  Country: US (occurrence: US)
  Receive Date: 20150508
  Receipt Date: 20150508
  Transmission Date: 20150821
  Serious: Yes (Hospitalization, Other)
  Sender: FDA-Public Use
  Company Number: US-SA-2015SA060235

PATIENT
  Age: 30 Year
  Sex: Male

DRUGS (1)
  1. HECTOROL [Suspect]
     Active Substance: DOXERCALCIFEROL
     Indication: CHRONIC KIDNEY DISEASE
     Dosage: 2 MCG VIAL
     Route: 042

REACTIONS (3)
  - Multiple fractures [Unknown]
  - Hyperparathyroidism [Unknown]
  - Fall [Unknown]
